FAERS Safety Report 6265174-9 (Version None)
Quarter: 2009Q3

REPORT INFORMATION
  Report Type: 
  Country: None (occurrence: None)
  Receive Date: 20090713
  Receipt Date: 20081103
  Transmission Date: 20100115
  Serious: No
  Sender: FDA-Public Use
  Company Number: US-TYCO HEALTHCARE/MALLINCKRODT-T200801885

PATIENT

DRUGS (1)
  1. MORPHINE [Suspect]
     Indication: NERVE INJURY
     Route: 048

REACTIONS (2)
  - FORMICATION [None]
  - WITHDRAWAL SYNDROME [None]
